FAERS Safety Report 9922344 (Version 1)
Quarter: 2014Q1

REPORT INFORMATION
  Report Type: Spontaneous
  Country: US (occurrence: None)
  Receive Date: 20140224
  Receipt Date: 20140224
  Transmission Date: 20141002
  Serious: Yes (Other)
  Sender: FDA-Public Use
  Company Number: None

PATIENT
  Age: 26 Year
  Sex: Male
  Weight: 136.08 kg

DRUGS (1)
  1. AMPH/DEXAMPH SALTS ER [Suspect]
     Indication: ATTENTION DEFICIT/HYPERACTIVITY DISORDER
     Route: 048
     Dates: start: 20140212, end: 20140221

REACTIONS (4)
  - Mental disorder [None]
  - Malaise [None]
  - Drug ineffective [None]
  - Panic attack [None]
